FAERS Safety Report 5243819-X (Version None)
Quarter: 2007Q1

REPORT INFORMATION
  Report Type: 
  Country: None (occurrence: None)
  Receive Date: 20070215
  Receipt Date: 20070131
  Transmission Date: 20070707
  Serious: Yes (Death, Hospitalization, Other)
  Sender: FDA-Public Use
  Company Number: 232512

PATIENT
  Age: 74 Year
  Sex: Male

DRUGS (3)
  1. RAPTIVA [Suspect]
     Indication: PSORIASIS
     Dosage: 100 MG/ML, 1/WEEK; SUBCUTANEOUS
     Route: 058
     Dates: start: 20060926
  2. DICLOFENAC SODIUM [Concomitant]
  3. CARBAMAZEPINE [Concomitant]

REACTIONS (17)
  - ATRIAL FIBRILLATION [None]
  - BACTERIAL RHINITIS [None]
  - CARDIAC ARREST [None]
  - CEREBRAL DISORDER [None]
  - GENERAL PHYSICAL HEALTH DETERIORATION [None]
  - GROIN INFECTION [None]
  - HEART RATE INCREASED [None]
  - HEPATIC FAILURE [None]
  - JAUNDICE CHOLESTATIC [None]
  - MENINGITIS ASEPTIC [None]
  - MENINGITIS STAPHYLOCOCCAL [None]
  - MULTI-ORGAN FAILURE [None]
  - RENAL FAILURE [None]
  - RESPIRATORY FAILURE [None]
  - SEPTIC SHOCK [None]
  - STAPHYLOCOCCAL INFECTION [None]
  - STAPHYLOCOCCAL PHARYNGITIS [None]
